FAERS Safety Report 4774555-1 (Version None)
Quarter: 2005Q3

REPORT INFORMATION
  Report Type: 
  Country: None (occurrence: None)
  Receive Date: 20050921
  Receipt Date: 20050819
  Transmission Date: 20060218
  Serious: Yes (Hospitalization)
  Sender: FDA-Public Use
  Company Number: PHBS2005BR12264

PATIENT
  Age: 74 Year
  Sex: Female
  Weight: 58 kg

DRUGS (6)
  1. ZOMETA [Suspect]
     Indication: METASTASES TO BONE
     Dosage: 4 MG EVERY 28 DAYS
     Route: 042
     Dates: start: 20020710, end: 20041028
  2. AROMATASE INHIBITOR [Concomitant]
  3. TAXOTERE [Concomitant]
     Dosage: 60 MG, QW
     Dates: start: 20020717, end: 20021107
  4. RADIOTHERAPY [Concomitant]
     Dates: start: 20020101, end: 20020101
  5. RADIOTHERAPY [Concomitant]
     Dates: start: 20020101
  6. CHEMOTHERAPEUTICS,OTHER [Concomitant]

REACTIONS (6)
  - ASEPTIC NECROSIS BONE [None]
  - BONE DEBRIDEMENT [None]
  - EATING DISORDER [None]
  - PAIN IN JAW [None]
  - TOOTH EXTRACTION [None]
  - TOOTHACHE [None]
